FAERS Safety Report 23750913 (Version 1)
Quarter: 2024Q2

REPORT INFORMATION
  Report Type: Other
  Country: CA (occurrence: None)
  Receive Date: 20240417
  Receipt Date: 20240417
  Transmission Date: 20240716
  Serious: Yes (Other)
  Sender: FDA-Public Use
  Company Number: CA-ROCHE-3492994

PATIENT
  Sex: Female

DRUGS (8)
  1. ERIVEDGE [Suspect]
     Active Substance: VISMODEGIB
     Indication: Basal cell carcinoma
     Dosage: DRUG DOSE FIRST ADMINISTERED IS 150 MG MILLIGRAM(S)
     Route: 048
     Dates: start: 20211230, end: 2022
  2. ERIVEDGE [Suspect]
     Active Substance: VISMODEGIB
     Dosage: DRUG DOSE FIRST ADMINISTERED IS 150 MG MILLIGRAM(S)
     Route: 048
     Dates: start: 2023, end: 2023
  3. ERIVEDGE [Suspect]
     Active Substance: VISMODEGIB
     Dosage: DRUG DOSE FIRST ADMINISTERED IS 150 MG MILLIGRAM(S)
     Route: 048
     Dates: start: 2023, end: 2023
  4. ERIVEDGE [Suspect]
     Active Substance: VISMODEGIB
     Dosage: DRUG DOSE FIRST ADMINISTERED IS 150 MG MILLIGRAM(S)
     Route: 048
     Dates: start: 2023
  5. LEVOTHYROXINE [Concomitant]
     Active Substance: LEVOTHYROXINE\LEVOTHYROXINE SODIUM
  6. MORPHINE [Concomitant]
     Active Substance: MORPHINE
  7. TYLENOL [Concomitant]
     Active Substance: ACETAMINOPHEN
  8. WARFARIN [Concomitant]
     Active Substance: WARFARIN

REACTIONS (4)
  - Acute respiratory failure [Unknown]
  - Chronic obstructive pulmonary disease [Unknown]
  - Vomiting [Unknown]
  - Respiratory distress [Unknown]
